FAERS Safety Report 4442594-6 (Version None)
Quarter: 2004Q3

REPORT INFORMATION
  Report Type: 
  Country: None (occurrence: None)
  Receive Date: 20040903
  Receipt Date: 20040720
  Transmission Date: 20050211
  Serious: Yes (Other)
  Sender: FDA-Public Use
  Company Number: 2004UW15153

PATIENT
  Sex: Female

DRUGS (5)
  1. CRESTOR [Suspect]
     Dosage: 10 MG PO
     Route: 048
  2. VIOXX [Concomitant]
  3. PRILOSEC [Concomitant]
  4. ORTHO CYCLEN-28 [Concomitant]
  5. DARVOCET-N 100 [Concomitant]

REACTIONS (2)
  - ASTHENIA [None]
  - MYALGIA [None]
